FAERS Safety Report 4921474-3 (Version None)
Quarter: 2006Q1

REPORT INFORMATION
  Report Type: 
  Country: None (occurrence: None)
  Receive Date: 20060224
  Receipt Date: 20060216
  Transmission Date: 20060701
  Serious: Yes (Hospitalization)
  Sender: FDA-Public Use
  Company Number: PHRM2006FR00826

PATIENT
  Age: 67 Year
  Sex: Female

DRUGS (1)
  1. COTAREG [Suspect]
     Dosage: 1 DF, QD
     Route: 048
     Dates: start: 20020615, end: 20050821

REACTIONS (1)
  - TONGUE OEDEMA [None]
